FAERS Safety Report 22206291 (Version 1)
Quarter: 2023Q2

REPORT INFORMATION
  Report Type: Spontaneous
  Country: US (occurrence: None)
  Receive Date: 20230412
  Receipt Date: 20230412
  Transmission Date: 20230722
  Serious: Yes (Other)
  Sender: FDA-Public Use
  Company Number: None

PATIENT
  Age: 25 Year
  Sex: Female
  Weight: 67.5 kg

DRUGS (4)
  1. INVEGA TRINZA [Suspect]
     Active Substance: PALIPERIDONE PALMITATE
     Indication: Psychotic disorder
     Dosage: OTHER FREQUENCY : EVERY 3 MONTHS;?
     Route: 030
     Dates: start: 20230301
  2. INVEGA TRINZA [Suspect]
     Active Substance: PALIPERIDONE PALMITATE
     Indication: Borderline personality disorder
  3. VENLAFAXINE [Concomitant]
     Active Substance: VENLAFAXINE HYDROCHLORIDE
     Dates: start: 20230217
  4. LAMICTAL [Concomitant]
     Active Substance: LAMOTRIGINE
     Dates: start: 20230217

REACTIONS (2)
  - Tremor [None]
  - Gait disturbance [None]

NARRATIVE: CASE EVENT DATE: 20230412
